FAERS Safety Report 5042645-4 (Version None)
Quarter: 2006Q2

REPORT INFORMATION
  Report Type: 
  Country: None (occurrence: None)
  Receive Date: 20060627
  Receipt Date: 20060607
  Transmission Date: 20061013
  Serious: Yes (Death)
  Sender: FDA-Public Use
  Company Number: CA200606000614

PATIENT
  Age: 66 Year
  Sex: Male

DRUGS (1)
  1. CIALIS [Suspect]
     Dosage: 20 MG
     Dates: start: 20040301

REACTIONS (4)
  - ALCOHOL USE [None]
  - DROWNING [None]
  - LOSS OF CONSCIOUSNESS [None]
  - SOMNOLENCE [None]
